FAERS Safety Report 5413062-X (Version None)
Quarter: 2007Q3

REPORT INFORMATION
  Report Type: 
  Country: None (occurrence: None)
  Receive Date: 20070813
  Receipt Date: 20070801
  Transmission Date: 20080115
  Serious: Yes (Other)
  Sender: FDA-Public Use
  Company Number: CN-PFIZER INC-2007061891

PATIENT
  Age: 53 Year
  Sex: Male

DRUGS (7)
  1. VFEND [Suspect]
     Indication: ASPERGILLOSIS
     Route: 042
     Dates: start: 20070522, end: 20070605
  2. VFEND [Suspect]
     Indication: ASPERGILLOSIS
     Route: 048
     Dates: start: 20070704, end: 20070721
  3. CANCIDAS [Concomitant]
     Route: 042
     Dates: start: 20070520, end: 20070727
  4. TRANSMETIL [Concomitant]
  5. EPOGEN [Concomitant]
  6. CEFOPERAZONE SODIUM [Concomitant]
     Dates: start: 20070520, end: 20070727
  7. TAZOBACTAM SODIUM [Concomitant]
     Dates: start: 20070520, end: 20070727

REACTIONS (3)
  - BACK PAIN [None]
  - FACIAL PAIN [None]
  - TOOTHACHE [None]
